FAERS Safety Report 9436903 (Version 2)
Quarter: 2013Q3

REPORT INFORMATION
  Report Type: Spontaneous
  Country: US (occurrence: US)
  Receive Date: 20130802
  Receipt Date: 20130819
  Transmission Date: 20140515
  Serious: No
  Sender: FDA-Public Use
  Company Number: US-PFIZER INC-2013224205

PATIENT
  Age: 63 Year
  Sex: Female
  Weight: 79.37 kg

DRUGS (2)
  1. CELEBREX [Suspect]
     Indication: ARTHRITIS
     Dosage: 200 MG, 1X/DAY
     Route: 048
     Dates: start: 20130701, end: 20130707
  2. LIPITOR [Concomitant]
     Dosage: UNK

REACTIONS (5)
  - Local swelling [Recovered/Resolved]
  - Eye swelling [Recovered/Resolved]
  - Miliaria [Recovered/Resolved]
  - Swelling face [Unknown]
  - Pruritus [Unknown]
